FAERS Safety Report 6592985-2 (Version None)
Quarter: 2010Q1

REPORT INFORMATION
  Report Type: 
  Country: None (occurrence: None)
  Receive Date: 20100212
  Receipt Date: 20100122
  Transmission Date: 20100710
  Serious: Yes (Other)
  Sender: FDA-Public Use
  Company Number: B0629956A

PATIENT
  Age: 71 Year
  Sex: Female

DRUGS (1)
  1. PAROXETINE HYDROCHLORIDE [Suspect]
     Indication: DEPRESSIVE SYMPTOM

REACTIONS (5)
  - BLOOD POTASSIUM DECREASED [None]
  - BRAIN OEDEMA [None]
  - INAPPROPRIATE ANTIDIURETIC HORMONE SECRETION [None]
  - MYDRIASIS [None]
  - THERAPEUTIC RESPONSE DELAYED [None]
